FAERS Safety Report 25691042 (Version 1)
Quarter: 2025Q3

REPORT INFORMATION
  Report Type: Report from Study
  Country: MX (occurrence: MX)
  Receive Date: 20250818
  Receipt Date: 20250818
  Transmission Date: 20251021
  Serious: Yes (Hospitalization, Other)
  Sender: ELI LILLY AND COMPANY
  Company Number: MX-Merck Healthcare KGaA-2025036503

PATIENT
  Age: 30 Year
  Sex: Male

DRUGS (2)
  1. CETUXIMAB [Suspect]
     Active Substance: CETUXIMAB
     Indication: Colorectal cancer
     Dosage: 800 MG, 2/M (ONCE IN 2 WEEKS)
     Route: 042
     Dates: start: 20250523
  2. LOPERAMIDE [Concomitant]
     Active Substance: LOPERAMIDE
     Indication: Flatulence
     Dosage: 1 DOSAGE FORM, EVERY 8 HRS
     Dates: start: 202412

REACTIONS (7)
  - Abdominal pain [Recovered/Resolved]
  - Abdominal distension [Recovered/Resolved]
  - Anaemia [Not Recovered/Not Resolved]
  - Weight decreased [Unknown]
  - Asthenia [Unknown]
  - Malignant neoplasm progression [Not Recovered/Not Resolved]
  - Off label use [Unknown]

NARRATIVE: CASE EVENT DATE: 20250710
